FAERS Safety Report 14755307 (Version 1)
Quarter: 2018Q2

REPORT INFORMATION
  Report Type: Spontaneous
  Country: DE (occurrence: DE)
  Receive Date: 20180413
  Receipt Date: 20180413
  Transmission Date: 20180711
  Serious: Yes (Hospitalization, Other)
  Sender: FDA-Public Use
  Company Number: DE-CONCORDIA PHARMACEUTICALS INC.-E2B_00011064

PATIENT
  Sex: Male

DRUGS (17)
  1. PREDNISOLONE. [Suspect]
     Active Substance: PREDNISOLONE
     Indication: B-CELL LYMPHOMA
     Dosage: 100 MG, UNK (HE RECEIVED 6 CYCLES OF CHLIP-14 AND 12 CYCLES OF OPTIMISED RITUXIMAB)
     Route: 048
  2. ACICLOVIR [Concomitant]
     Active Substance: ACYCLOVIR
     Indication: INFECTION PROPHYLAXIS
     Dosage: 400 MG, QID
     Dates: start: 201405
  3. DOXORUBICIN [Suspect]
     Active Substance: DOXORUBICIN
     Dosage: 50 MG/M2, UNK (RECEIVED 6 CYCLES OF CHLIP-14 AND 12 CYCLES OF OPTIMISED RITUXIMAB)
     Route: 042
  4. ALLOPURINOL. [Concomitant]
     Active Substance: ALLOPURINOL
     Indication: PROPHYLAXIS
     Dosage: 300 MG, QD
     Route: 048
     Dates: start: 201405
  5. PREDNISOLONE. [Suspect]
     Active Substance: PREDNISOLONE
     Dosage: 100 MG, QD
     Route: 048
     Dates: start: 20140625, end: 20140629
  6. CYCLOPHOSPHAMIDE. [Suspect]
     Active Substance: CYCLOPHOSPHAMIDE
     Dosage: 1403 MG, QD
     Route: 042
     Dates: start: 20140625, end: 20140625
  7. VINCRISTINE [Suspect]
     Active Substance: VINCRISTINE
     Indication: B-CELL LYMPHOMA
     Dosage: 3.74 MG, QD
     Route: 042
     Dates: start: 20140708, end: 20140708
  8. RITUXIMAB. [Suspect]
     Active Substance: RITUXIMAB
     Indication: B-CELL LYMPHOMA
     Dosage: 694 MG, UNK (LAST DOSE PRIOR TO SAE: 07/JUL/2014)
     Route: 042
     Dates: start: 20140707, end: 20140707
  9. RITUXIMAB. [Suspect]
     Active Substance: RITUXIMAB
     Dosage: 375 MG/M2, UNK (HE RECEIVED 6 CYCLES OF CHLIP-14 AND 12 CYCLES OF OPTIMISED RITUXIMAB)
  10. ALLOPURINOL. [Concomitant]
     Active Substance: ALLOPURINOL
     Indication: HYPERURICAEMIA
  11. COLECALCIFEROL [Concomitant]
     Active Substance: CHOLECALCIFEROL
     Indication: VITAMIN D DEFICIENCY
     Dosage: 5 MG, QWK
     Route: 048
     Dates: start: 201405
  12. DOXORUBICIN [Suspect]
     Active Substance: DOXORUBICIN
     Indication: B-CELL LYMPHOMA
     Dosage: 94 MG, QD
     Route: 042
     Dates: start: 20140625, end: 20140625
  13. FILGRASTIM [Suspect]
     Active Substance: FILGRASTIM
     Indication: B-CELL LYMPHOMA
     Dosage: 480 MUG, QD
     Route: 058
     Dates: start: 20140630, end: 20140704
  14. SULFAMETHOXAZOLE W/TRIMETHOPRIM [Concomitant]
     Active Substance: SULFAMETHOXAZOLE\TRIMETHOPRIM
     Indication: INFECTION PROPHYLAXIS
     Dosage: 960 MG, UNK (2/D-2/WEEK)
     Route: 048
     Dates: start: 201405
  15. PANTOPRAZOLE [Concomitant]
     Active Substance: PANTOPRAZOLE
     Indication: PROPHYLAXIS
     Dosage: 40 MG, QD
     Route: 048
     Dates: start: 201405
  16. VINCRISTINE [Suspect]
     Active Substance: VINCRISTINE
     Dosage: 1.4 MG/M2, UNK (MAX 2 MG) (HE RECEIVED 6 CYCLES OF CHLIP-14 AND 12 CYCLES OF OPTIMISED RITUXIMAB)
     Route: 042
  17. CYCLOPHOSPHAMIDE. [Suspect]
     Active Substance: CYCLOPHOSPHAMIDE
     Indication: B-CELL LYMPHOMA
     Dosage: 750 MG/M2, UNK (HE RECEIVED 6 CYCLES OF CHLIP-14 AND 12 CYCLES OF OPTIMISED RITUXIMAB)
     Route: 042

REACTIONS (3)
  - Sinus tachycardia [Recovered/Resolved]
  - Arrhythmia [Unknown]
  - Neutrophil count decreased [Unknown]

NARRATIVE: CASE EVENT DATE: 20140709
